FAERS Safety Report 10652717 (Version 2)
Quarter: 2014Q4

REPORT INFORMATION
  Report Type: Spontaneous
  Country: US (occurrence: US)
  Receive Date: 20141215
  Receipt Date: 20141215
  Transmission Date: 20150529
  Serious: Yes (Hospitalization)
  Sender: FDA-Public Use
  Company Number: US-ASTRAZENECA-2004UW25720

PATIENT
  Age: 80 Year
  Sex: Female
  Weight: 61.2 kg

DRUGS (16)
  1. CRESTOR [Suspect]
     Active Substance: ROSUVASTATIN CALCIUM
     Indication: BLOOD CHOLESTEROL INCREASED
     Route: 048
     Dates: start: 2010
  2. PERFERVISION [Concomitant]
     Indication: EYE DISORDER
     Dosage: DAILY
     Route: 048
     Dates: start: 2012
  3. CRESTOR [Suspect]
     Active Substance: ROSUVASTATIN CALCIUM
     Indication: BLOOD CHOLESTEROL INCREASED
     Route: 048
     Dates: start: 200403
  4. MAGNESIUM OXIDE. [Concomitant]
     Active Substance: MAGNESIUM OXIDE
     Indication: ADJUVANT THERAPY
     Route: 048
  5. ASPIRIN. [Concomitant]
     Active Substance: ASPIRIN
     Indication: PROPHYLAXIS
     Route: 048
  6. COLACE [Concomitant]
     Active Substance: DOCUSATE SODIUM
     Indication: FAECES HARD
     Route: 048
     Dates: start: 2010
  7. VITAMIN D OTC [Concomitant]
     Indication: VITAMIN D DECREASED
     Dosage: 2000 UNITS PERDAY
     Dates: start: 2013
  8. TOPROL XL [Suspect]
     Active Substance: METOPROLOL SUCCINATE
     Indication: HEART RATE IRREGULAR
     Route: 048
     Dates: start: 2014
  9. ACTONEL [Concomitant]
     Active Substance: RISEDRONATE SODIUM
  10. TIKOSYN [Concomitant]
     Active Substance: DOFETILIDE
     Indication: ATRIAL FIBRILLATION
  11. AMIRODIONE [Concomitant]
  12. LISINOPRIL. [Suspect]
     Active Substance: LISINOPRIL
     Indication: HYPERTENSION
     Route: 048
     Dates: start: 2013
  13. WARFARIN [Concomitant]
     Active Substance: WARFARIN
     Indication: ANTICOAGULANT THERAPY
     Dates: start: 2008
  14. TOPROL XL [Suspect]
     Active Substance: METOPROLOL SUCCINATE
     Indication: HEART RATE IRREGULAR
     Route: 048
     Dates: start: 2010
  15. COUMADIN [Concomitant]
     Active Substance: WARFARIN SODIUM
  16. LASIX [Concomitant]
     Active Substance: FUROSEMIDE
     Indication: PERICARDIAL EFFUSION

REACTIONS (10)
  - Off label use [Unknown]
  - Hypertension [Unknown]
  - Pain in extremity [Not Recovered/Not Resolved]
  - Heart rate increased [Recovered/Resolved]
  - Nocturia [Unknown]
  - Sleep disorder due to general medical condition, insomnia type [Recovered/Resolved]
  - Dyspnoea [Recovered/Resolved]
  - Intentional product misuse [Unknown]
  - Vitamin D decreased [Unknown]
  - Atrial fibrillation [Not Recovered/Not Resolved]

NARRATIVE: CASE EVENT DATE: 2010
